FAERS Safety Report 9121467 (Version 1)
Quarter: 2013Q1

REPORT INFORMATION
  Report Type: Spontaneous
  Country: US (occurrence: US)
  Receive Date: 20130227
  Receipt Date: 20130227
  Transmission Date: 20140127
  Serious: Yes (Hospitalization, Other)
  Sender: FDA-Public Use
  Company Number: US-AMGEN-USASP2013012195

PATIENT
  Age: 49 Year
  Sex: Male

DRUGS (2)
  1. ENBREL [Suspect]
     Indication: PSORIASIS
     Dosage: 50 MG, 2 TIMES/WK
     Route: 058
  2. CALCIPOTRIENE [Concomitant]
     Dosage: 0.005 %, BID

REACTIONS (4)
  - Pleural effusion [Recovered/Resolved]
  - Pulmonary tuberculosis [Recovered/Resolved]
  - Pneumonia [Recovered/Resolved]
  - Psoriasis [Recovering/Resolving]
